FAERS Safety Report 4400892-6 (Version None)
Quarter: 2004Q3

REPORT INFORMATION
  Report Type: 
  Country: None (occurrence: None)
  Receive Date: 20040907
  Receipt Date: 20030725
  Transmission Date: 20050211
  Serious: Yes (Hospitalization)
  Sender: FDA-Public Use
  Company Number: US-BRISTOL-MYERS SQUIBB COMPANY-12335097

PATIENT
  Age: 84 Year
  Sex: Female
  Weight: 58 kg

DRUGS (4)
  1. COUMADIN [Suspect]
     Indication: ARTERIAL OCCLUSIVE DISEASE
     Dosage: DOSE: 2.5 TO 1/2 OF 2.5 DOSE (1.25MG).
     Route: 048
  2. SYNTHROID [Concomitant]
     Dosage: TAKEN FOR ^ABOUT A YEAR^.
  3. ENALAPRIL MALEATE [Concomitant]
     Dosage: TAKEN 1-2 YEARS.
  4. DEMADEX [Concomitant]
     Dosage: TAKEN FOR A ^COUPLE OF^ YEARS

REACTIONS (1)
  - NECROSIS [None]
